FAERS Safety Report 15835336 (Version 7)
Quarter: 2019Q2

REPORT INFORMATION
  Report Type: Spontaneous
  Country: AT (occurrence: AT)
  Receive Date: 20190117
  Receipt Date: 20190605
  Transmission Date: 20190711
  Serious: Yes (Life-Threatening, Hospitalization, Other)
  Sender: FDA-Public Use
  Company Number: AT-AUROBINDO-AUR-APL-2019-001606

PATIENT

DRUGS (7)
  1. CONCOR PLUS [Concomitant]
     Active Substance: BISOPROLOL FUMARATE\HYDROCHLOROTHIAZIDE
     Indication: PRODUCT USED FOR UNKNOWN INDICATION
     Dosage: 1 DOSAGE FORM, ONCE A DAY, B1SOPROIOL: 5 MG; HYDROCHLOROTHIAZIDE: 12.50 MG
     Route: 065
  2. ELIQUIS [Concomitant]
     Active Substance: APIXABAN
     Indication: ANTICOAGULANT THERAPY
     Dosage: 5 MILLIGRAM, TWICE DAILY
     Route: 065
  3. EXFORGE [Concomitant]
     Active Substance: AMLODIPINE BESYLATE\VALSARTAN
     Indication: PRODUCT USED FOR UNKNOWN INDICATION
     Dosage: 1 DOSAGE FORM, ONCE A DAY
     Route: 065
  4. ELIQUIS [Concomitant]
     Active Substance: APIXABAN
     Dosage: 10 MILLIGRAM, ONCE A DAY (1-0-1)
     Route: 065
  5. METFORMIN [Suspect]
     Active Substance: METFORMIN HYDROCHLORIDE
     Indication: TYPE 2 DIABETES MELLITUS
     Dosage: 2000 MILLIGRAM, ONCE A DAY (1000 MG, BID)
     Route: 065
  6. EXFORGE [Concomitant]
     Active Substance: AMLODIPINE BESYLATE\VALSARTAN
     Dosage: (10/160MG, 1-0-0)
     Route: 065
  7. METFORMIN [Suspect]
     Active Substance: METFORMIN HYDROCHLORIDE
     Dosage: 1000 MILLIGRAM, TWO TIMES A DAY
     Route: 065

REACTIONS (12)
  - Lactic acidosis [Recovered/Resolved]
  - Psychotic disorder [Unknown]
  - General physical condition decreased [Recovering/Resolving]
  - Depression [Recovering/Resolving]
  - Hypotension [Unknown]
  - Acute kidney injury [Unknown]
  - Renal failure [Recovering/Resolving]
  - Polyuria [Recovering/Resolving]
  - Delirium [Recovering/Resolving]
  - Disorientation [Unknown]
  - Hypotonia [Recovering/Resolving]
  - Anuria [Recovering/Resolving]
